FAERS Safety Report 23309985 (Version 1)
Quarter: 2023Q4

REPORT INFORMATION
  Report Type: Spontaneous
  Country: CA (occurrence: CA)
  Receive Date: 20231218
  Receipt Date: 20231218
  Transmission Date: 20240109
  Serious: Yes (Other)
  Sender: FDA-Public Use
  Company Number: CA-MYLANLABS-2023M1132536

PATIENT
  Sex: Male

DRUGS (7)
  1. EPLERENONE [Suspect]
     Active Substance: EPLERENONE
     Indication: Primary hyperaldosteronism
     Dosage: 25 MILLIGRAM, BID
     Route: 064
  2. NIFEDIPINE [Suspect]
     Active Substance: NIFEDIPINE
     Indication: Primary hyperaldosteronism
     Dosage: 60 MILLIGRAM, BID
     Route: 064
  3. NIFEDIPINE [Suspect]
     Active Substance: NIFEDIPINE
     Indication: Hypertension
     Dosage: 30 MILLIGRAM, BID
     Route: 064
  4. LABETALOL [Suspect]
     Active Substance: LABETALOL\LABETALOL HYDROCHLORIDE
     Indication: Hypertension
     Dosage: 200 MILLIGRAM, QID
     Route: 064
  5. LABETALOL [Suspect]
     Active Substance: LABETALOL\LABETALOL HYDROCHLORIDE
     Dosage: 100 MILLIGRAM, BID
     Route: 064
  6. POTASSIUM CHLORIDE [Suspect]
     Active Substance: POTASSIUM CHLORIDE
     Indication: Primary hyperaldosteronism
     Dosage: UNK (PARENTRAL)
     Route: 064
  7. POTASSIUM CHLORIDE [Suspect]
     Active Substance: POTASSIUM CHLORIDE
     Indication: Hypokalaemia
     Dosage: UNK
     Route: 064

REACTIONS (2)
  - Premature baby [Unknown]
  - Foetal exposure during pregnancy [Recovered/Resolved]
